FAERS Safety Report 8027067-6 (Version None)
Quarter: 2012Q1

REPORT INFORMATION
  Report Type: 
  Country: None (occurrence: None)
  Receive Date: 20120106
  Receipt Date: 20111229
  Transmission Date: 20120608
  Serious: Yes (Other)
  Sender: FDA-Public Use
  Company Number: US-BAYER-2012-000087

PATIENT
  Age: 29 Year
  Sex: Female

DRUGS (2)
  1. YASMIN [Suspect]
     Dosage: UNK
     Dates: start: 20070601, end: 20090301
  2. YAZ [Suspect]
     Dosage: UNK
     Dates: start: 20070601, end: 20090301

REACTIONS (4)
  - PULMONARY EMBOLISM [None]
  - THROMBOSIS [None]
  - INJURY [None]
  - PAIN [None]
